FAERS Safety Report 19025406 (Version 1)
Quarter: 2021Q1

REPORT INFORMATION
  Report Type: Other
  Country: US (occurrence: US)
  Receive Date: 20210318
  Receipt Date: 20210318
  Transmission Date: 20210420
  Serious: Yes (Death, Other)
  Sender: FDA-Public Use
  Company Number: US-ROCHE-2786988

PATIENT

DRUGS (9)
  1. MELPHALAN. [Concomitant]
     Active Substance: MELPHALAN
     Indication: IMMUNOSUPPRESSION
  2. ITACITINIB [Suspect]
     Active Substance: ITACITINIB
     Indication: PROPHYLAXIS AGAINST GRAFT VERSUS HOST DISEASE
     Dosage: BEGINNING 3 D BEFORE HCT
     Route: 048
  3. FLUDARABINE [Concomitant]
     Active Substance: FLUDARABINE PHOSPHATE
     Indication: IMMUNOSUPPRESSION
  4. MYCOPHENOLATE MOFETIL. [Suspect]
     Active Substance: MYCOPHENOLATE MOFETIL
     Indication: PROPHYLAXIS AGAINST GRAFT VERSUS HOST DISEASE
     Route: 065
  5. BUSULFAN. [Concomitant]
     Active Substance: BUSULFAN
     Indication: IMMUNOSUPPRESSION
  6. TACROLIMUS. [Suspect]
     Active Substance: TACROLIMUS
     Indication: PROPHYLAXIS AGAINST GRAFT VERSUS HOST DISEASE
     Route: 065
  7. CYCLOSPORINE A [Suspect]
     Active Substance: CYCLOSPORINE
     Indication: PROPHYLAXIS AGAINST GRAFT VERSUS HOST DISEASE
     Route: 065
  8. ANTITHYMOCYTE IMMUNOGLOBULIN [Suspect]
     Active Substance: THYMOCYTE IMMUNE GLOBULIN NOS
     Indication: PROPHYLAXIS AGAINST GRAFT VERSUS HOST DISEASE
     Route: 065
  9. METHOTREXATE. [Suspect]
     Active Substance: METHOTREXATE
     Indication: PROPHYLAXIS AGAINST GRAFT VERSUS HOST DISEASE
     Route: 065

REACTIONS (6)
  - Neoplasm malignant [Unknown]
  - Anaemia [Unknown]
  - Infection [Fatal]
  - Haemorrhage intracranial [Fatal]
  - Thrombocytopenia [Unknown]
  - Cytomegalovirus infection reactivation [Unknown]
